FAERS Safety Report 6575345-X (Version None)
Quarter: 2010Q1

REPORT INFORMATION
  Report Type: 
  Country: None (occurrence: None)
  Receive Date: 20100202
  Receipt Date: 20100122
  Transmission Date: 20100710
  Serious: Yes (Other)
  Sender: FDA-Public Use
  Company Number: 1-21208184

PATIENT
  Age: 67 Year
  Sex: Female
  Weight: 62.5964 kg

DRUGS (8)
  1. FENTANYL-25 [Suspect]
     Dosage: TRANSDERMAL
     Route: 062
  2. FENTANYL-50 [Suspect]
     Dosage: 50 MCG/HR EVERY 3 DAY, TRANSDERMAL
     Route: 062
     Dates: start: 20091101
  3. FIORICET [Suspect]
     Indication: MIGRAINE
     Dosage: ORAL
     Route: 048
  4. TOPROL-XL [Concomitant]
  5. ZOCOR [Concomitant]
  6. PLAVIX [Concomitant]
  7. ISOSORBIDE MONONITRATE [Concomitant]
  8. DILAUDID [Concomitant]

REACTIONS (12)
  - ABDOMINAL DISCOMFORT [None]
  - CERUMEN IMPACTION [None]
  - CONFUSIONAL STATE [None]
  - CRYING [None]
  - DIZZINESS [None]
  - PAIN [None]
  - PRODUCT QUALITY ISSUE [None]
  - PRODUCT SUBSTITUTION ISSUE [None]
  - TACHYPNOEA [None]
  - TRANSIENT ISCHAEMIC ATTACK [None]
  - TREMOR [None]
  - WEIGHT DECREASED [None]
